FAERS Safety Report 24903764 (Version 2)
Quarter: 2025Q2

REPORT INFORMATION
  Report Type: Spontaneous
  Country: US (occurrence: US)
  Receive Date: 20250130
  Receipt Date: 20250506
  Transmission Date: 20250716
  Serious: Yes (Death, Other)
  Sender: GLAXOSMITHKLINE
  Company Number: US-GLAXOSMITHKLINE INC-US2025AMR009170

PATIENT

DRUGS (14)
  1. TRELEGY ELLIPTA [Suspect]
     Active Substance: FLUTICASONE FUROATE\UMECLIDINIUM BROMIDE\VILANTEROL TRIFENATATE
     Indication: Lung disorder
     Dosage: 1 DF, QD, 200/62.5/25 MCG
     Route: 055
     Dates: start: 20220527
  2. ALBUTEROL SULFATE [Suspect]
     Active Substance: ALBUTEROL SULFATE
     Indication: Dyspnoea
     Route: 055
     Dates: start: 20220527
  3. TAFINLAR [Suspect]
     Active Substance: DABRAFENIB MESYLATE
     Indication: Non-small cell lung cancer
     Dosage: UNK, BID, 150
     Route: 048
     Dates: start: 20220429, end: 20220527
  4. MEKINIST [Suspect]
     Active Substance: TRAMETINIB DIMETHYL SULFOXIDE
     Indication: Non-small cell lung cancer
     Dosage: 2 MG, QD
     Route: 048
     Dates: start: 20220429, end: 20220527
  5. ATROPINE [Suspect]
     Active Substance: ATROPINE
     Indication: Secretion discharge
     Route: 047
     Dates: start: 20220527
  6. BISACODYL [Suspect]
     Active Substance: BISACODYL
     Indication: Constipation
     Dosage: 1 DF, BID, AS NEEDED
     Route: 054
     Dates: start: 20220527
  7. LORAZEPAM [Suspect]
     Active Substance: LORAZEPAM
     Indication: Anxiety
     Route: 048
     Dates: start: 20220527
  8. LORAZEPAM [Suspect]
     Active Substance: LORAZEPAM
     Indication: Agitation
  9. MORPHINE [Suspect]
     Active Substance: MORPHINE
     Indication: Pain
     Route: 048
     Dates: start: 20220527
  10. MORPHINE [Suspect]
     Active Substance: MORPHINE
     Indication: Dyspnoea
  11. OMEPRAZOLE [Suspect]
     Active Substance: OMEPRAZOLE
     Indication: Gastrooesophageal reflux disease
     Dosage: 20 MG, QD, DELAYED RELEASE
     Route: 048
     Dates: start: 20220527
  12. PROCHLORPERAZINE MALEATE [Suspect]
     Active Substance: PROCHLORPERAZINE MALEATE
     Indication: Ill-defined disorder
     Dates: start: 20220527
  13. TYLENOL [Suspect]
     Active Substance: ACETAMINOPHEN
     Indication: Pain
     Dosage: 650 MG, TID, AS NEEDED
     Route: 048
     Dates: start: 20220527
  14. TYLENOL [Suspect]
     Active Substance: ACETAMINOPHEN
     Indication: Pyrexia

REACTIONS (3)
  - Death [Fatal]
  - Disease progression [Fatal]
  - Infection [Fatal]

NARRATIVE: CASE EVENT DATE: 20220530
